FAERS Safety Report 9893399 (Version 2)
Quarter: 2014Q1

REPORT INFORMATION
  Report Type: Report from Study
  Country: US (occurrence: US)
  Receive Date: 20140213
  Receipt Date: 20140310
  Transmission Date: 20141002
  Serious: Yes (Hospitalization)
  Sender: FDA-Public Use
  Company Number: US-JNJFOC-20140204225

PATIENT
  Age: 64 Year
  Sex: Female
  Weight: 108.86 kg

DRUGS (9)
  1. REMICADE [Suspect]
     Indication: RHEUMATOID ARTHRITIS
     Route: 042
     Dates: start: 20140217
  2. REMICADE [Suspect]
     Indication: RHEUMATOID ARTHRITIS
     Route: 042
     Dates: start: 201311
  3. METFORMIN [Concomitant]
     Indication: DIABETES MELLITUS
     Dosage: 2 DAY
     Route: 065
  4. OMEPRAZOLE [Concomitant]
     Dosage: 1 DAY
     Route: 065
  5. METHOTREXATE [Concomitant]
     Dosage: 8-/WEEKLY
     Route: 065
  6. FUROSEMIDE [Concomitant]
     Dosage: 2 DAY
     Route: 065
  7. BENAZEPRIL [Concomitant]
     Dosage: 2 DAY
     Route: 065
  8. FOLIC ACID [Concomitant]
     Dosage: 1 DAY
     Route: 065
  9. PREDNISONE [Concomitant]
     Dosage: DOSE: 2.5 (UNITS UNSPECIFIED), 1 DAY
     Route: 065

REACTIONS (2)
  - Breast cancer [Recovered/Resolved]
  - Pain [Unknown]
